FAERS Safety Report 9150650 (Version 1)
Quarter: 2013Q1

REPORT INFORMATION
  Report Type: Spontaneous
  Country: US (occurrence: None)
  Receive Date: 20130305
  Receipt Date: 20130305
  Transmission Date: 20140127
  Serious: Yes (Other)
  Sender: FDA-Public Use
  Company Number: None

PATIENT
  Age: 18 Year
  Sex: Female
  Weight: 51.4 kg

DRUGS (2)
  1. LAMOTRIGINE [Suspect]
     Indication: CONVULSION
     Route: 048
  2. LAMOTRIGINE [Suspect]
     Route: 048

REACTIONS (1)
  - Lethargy [None]
